FAERS Safety Report 9147787 (Version 2)
Quarter: 2013Q4

REPORT INFORMATION
  Report Type: Report from Study
  Country: FI (occurrence: FI)
  Receive Date: 20130307
  Receipt Date: 20131004
  Transmission Date: 20140711
  Serious: Yes (Other)
  Sender: FDA-Public Use
  Company Number: FI-ELI_LILLY_AND_COMPANY-FI201302008757

PATIENT
  Sex: Female

DRUGS (14)
  1. TERIPARATIDE [Suspect]
     Indication: OSTEOPOROSIS
     Dosage: 20 UG, QD
     Route: 058
     Dates: start: 20120423, end: 201302
  2. INSULIN [Concomitant]
     Indication: DIABETES MELLITUS
  3. VENTOLINE                          /00139501/ [Concomitant]
  4. SERETIDE [Concomitant]
  5. PREDNISON [Concomitant]
  6. ATRODUAL [Concomitant]
  7. SOMAC [Concomitant]
  8. CREON [Concomitant]
  9. RIDAURA [Concomitant]
  10. PULMICORT [Concomitant]
  11. JEKOVIT [Concomitant]
  12. KALCIPOS-D [Concomitant]
  13. VITAMIN B12 [Concomitant]
     Dosage: UNK, EVERY SECOND WEEK
  14. EPIPEN [Concomitant]
     Dosage: UNK, PRN

REACTIONS (4)
  - Urticaria [Recovered/Resolved]
  - Respiratory depression [Recovered/Resolved]
  - Oedema mouth [Recovered/Resolved]
  - Feeling abnormal [Recovered/Resolved]
